FAERS Safety Report 4771220-1 (Version None)
Quarter: 2005Q3

REPORT INFORMATION
  Report Type: 
  Country: None (occurrence: None)
  Receive Date: 20050914
  Receipt Date: 20050907
  Transmission Date: 20060218
  Serious: Yes (Other)
  Sender: FDA-Public Use
  Company Number: 217344

PATIENT
  Age: 52 Year
  Sex: Female

DRUGS (7)
  1. XOLAIR [Suspect]
     Indication: ASTHMA
     Dosage: 300 MG, Q4W, SUBCUTANEOUS
     Route: 058
     Dates: start: 20050826, end: 20050826
  2. SINGULAIR [Concomitant]
  3. VENTOLIN (ALBUTEROL SULFATE, ALBUTEROL) [Concomitant]
  4. BROMFENEX PE (PHENYLEPHRINE HYDROCHLORIDE, BROMPHENIRAMINE MALEATE) [Concomitant]
  5. SUDAFED 12 HOUR [Concomitant]
  6. EPIPEN (EPINEPHRINE) [Concomitant]
  7. BENADRYL [Concomitant]

REACTIONS (2)
  - ANAPHYLACTIC REACTION [None]
  - UNEVALUABLE EVENT [None]
